FAERS Safety Report 7625960-7 (Version None)
Quarter: 2011Q3

REPORT INFORMATION
  Report Type: 
  Country: None (occurrence: None)
  Receive Date: 20110721
  Receipt Date: 20110708
  Transmission Date: 20111222
  Serious: Yes (Hospitalization)
  Sender: FDA-Public Use
  Company Number: US-DX529-2011DX000035

PATIENT
  Age: 45 Year
  Sex: Female
  Weight: 95.26 kg

DRUGS (5)
  1. DANAZOL [Concomitant]
     Indication: HEREDITARY ANGIOEDEMA
     Route: 065
  2. ATIVAN [Suspect]
     Indication: HEREDITARY ANGIOEDEMA
     Route: 042
     Dates: start: 20110707
  3. SINGULAIR [Concomitant]
     Indication: PRODUCT USED FOR UNKNOWN INDICATION
     Route: 065
  4. KALBITOR [Suspect]
     Indication: HEREDITARY ANGIOEDEMA
     Dates: start: 20110707, end: 20110707
  5. SOLU-MEDROL [Suspect]
     Indication: HEREDITARY ANGIOEDEMA
     Route: 042
     Dates: start: 20110707

REACTIONS (2)
  - BLOOD PRESSURE INCREASED [None]
  - GRAND MAL CONVULSION [None]
